FAERS Safety Report 4537573-4 (Version None)
Quarter: 2004Q4

REPORT INFORMATION
  Report Type: 
  Country: None (occurrence: None)
  Receive Date: 20041214
  Receipt Date: 20040913
  Transmission Date: 20050328
  Serious: Yes (Other)
  Sender: FDA-Public Use
  Company Number: 10061803-NC025916-1

PATIENT
  Age: 52 Year
  Sex: Female

DRUGS (1)
  1. VANCOCIN HCL [Suspect]
     Indication: OSTEOMYELITIS
     Dosage: 1G, Q 12 HOURS, IV
     Dates: start: 20040903

REACTIONS (1)
  - RASH [None]
